FAERS Safety Report 7418452-1 (Version None)
Quarter: 2011Q2

REPORT INFORMATION
  Report Type: 
  Country: None (occurrence: None)
  Receive Date: 20110415
  Receipt Date: 20110406
  Transmission Date: 20111010
  Serious: Yes (Death, Hospitalization)
  Sender: FDA-Public Use
  Company Number: CA-BRISTOL-MYERS SQUIBB COMPANY-15096589

PATIENT
  Age: 72 Year
  Sex: Male

DRUGS (18)
  1. FERROUS SULFATE [Concomitant]
  2. ASPIRIN [Concomitant]
  3. AMITRIPTYLINE [Concomitant]
  4. CALCIUM [Concomitant]
  5. SENNA [Concomitant]
  6. ALENDRONATE SODIUM [Concomitant]
  7. APO-HYDROXYQUINE [Concomitant]
  8. LANSOPRAZOLE [Concomitant]
  9. ORENCIA [Suspect]
     Indication: RHEUMATOID ARTHRITIS
     Dosage: RECEIVED:8 INF.LAST INFUSION ON 20MAY2010;01JUN10;16NOV2010(Q4)
     Route: 042
     Dates: start: 20100504
  10. APO-FOLIC [Concomitant]
  11. HYDROMORPHONE HCL [Concomitant]
  12. PREDNISONE [Concomitant]
  13. METHOTREXATE [Suspect]
     Dosage: INJ
  14. COUMADIN [Concomitant]
  15. LIPITOR [Concomitant]
  16. FENTANYL [Concomitant]
     Dosage: RATIO FENTANYL
  17. DOCUSATE [Concomitant]
  18. FUCIDINE CAP [Concomitant]

REACTIONS (7)
  - PANCYTOPENIA [None]
  - DIZZINESS [None]
  - COLITIS [None]
  - ASTHENIA [None]
  - BURN OF INTERNAL ORGANS [None]
  - STOMATITIS [None]
  - PNEUMONIA [None]
